FAERS Safety Report 7224525-9 (Version None)
Quarter: 2011Q1

REPORT INFORMATION
  Report Type: 
  Country: None (occurrence: None)
  Receive Date: 20110113
  Receipt Date: 20110110
  Transmission Date: 20110831
  Serious: No
  Sender: FDA-Public Use
  Company Number: US-PFIZER INC-2011006575

PATIENT
  Sex: Female
  Weight: 75 kg

DRUGS (1)
  1. VERAPAMIL HCL [Suspect]
     Indication: TACHYCARDIA
     Dosage: UNK

REACTIONS (1)
  - DRUG INEFFECTIVE [None]
